FAERS Safety Report 6763918-0 (Version None)
Quarter: 2010Q2

REPORT INFORMATION
  Report Type: 
  Country: None (occurrence: None)
  Receive Date: 20100610
  Receipt Date: 20100601
  Transmission Date: 20101027
  Serious: Yes (Other)
  Sender: FDA-Public Use
  Company Number: US-PFIZER INC-2010069450

PATIENT
  Sex: Female
  Weight: 79.37 kg

DRUGS (4)
  1. LIPITOR [Suspect]
     Dosage: UNK, DAILY
     Route: 048
     Dates: start: 20090101, end: 20100528
  2. MAVIK [Concomitant]
     Indication: HYPERTENSION
     Dosage: UNK
  3. VERAPAMIL [Concomitant]
     Indication: HYPERTENSION
     Dosage: UNK
  4. PREDNISONE [Concomitant]
     Dosage: UNK

REACTIONS (2)
  - MUSCLE ATROPHY [None]
  - RENAL FAILURE [None]
